FAERS Safety Report 8486555-9 (Version None)
Quarter: 2012Q3

REPORT INFORMATION
  Report Type: 
  Country: None (occurrence: None)
  Receive Date: 20120703
  Receipt Date: 20120604
  Transmission Date: 20120928
  Serious: No
  Sender: FDA-Public Use
  Company Number: US-BAYER-2012-057092

PATIENT
  Sex: Female

DRUGS (3)
  1. ALEVE (CAPLET) [Suspect]
     Indication: DYSMENORRHOEA
     Dosage: 2 DF, UNK
     Route: 048
     Dates: start: 20120603
  2. MOTRIN [Concomitant]
     Dosage: 1 DF, UNK
     Route: 048
  3. EXTRA STRENGTH TYLENOL [Concomitant]
     Dosage: 2 DF, UNK

REACTIONS (3)
  - NAUSEA [None]
  - DYSMENORRHOEA [None]
  - DYSSTASIA [None]
